FAERS Safety Report 21032712 (Version 1)
Quarter: 2022Q2

REPORT INFORMATION
  Report Type: Spontaneous
  Country: US (occurrence: None)
  Receive Date: 20220630
  Receipt Date: 20220630
  Transmission Date: 20220721
  Serious: Yes (Hospitalization)
  Sender: FDA-Public Use
  Company Number: None

PATIENT
  Sex: Male

DRUGS (1)
  1. BOSULIF [Suspect]
     Active Substance: BOSUTINIB MONOHYDRATE
     Indication: Acute lymphocytic leukaemia
     Dosage: 500MG  ONCE DAILY ORAL?
     Route: 048
     Dates: start: 20220603, end: 20220616

REACTIONS (3)
  - Cough [None]
  - Headache [None]
  - Dyspnoea [None]
